FAERS Safety Report 7391576-3 (Version None)
Quarter: 2011Q2

REPORT INFORMATION
  Report Type: 
  Country: None (occurrence: None)
  Receive Date: 20110404
  Receipt Date: 20110322
  Transmission Date: 20111010
  Serious: Yes (Hospitalization)
  Sender: FDA-Public Use
  Company Number: PHHY2011US23952

PATIENT
  Sex: Male

DRUGS (2)
  1. LOVASTATIN [Concomitant]
  2. DIOVAN [Suspect]
     Dosage: 160 MG PER DAY

REACTIONS (1)
  - MYOCARDIAL INFARCTION [None]
